FAERS Safety Report 5962469-0 (Version None)
Quarter: 2008Q4

REPORT INFORMATION
  Report Type: 
  Country: None (occurrence: None)
  Receive Date: 20081121
  Receipt Date: 20081110
  Transmission Date: 20090506
  Serious: Yes (Other)
  Sender: FDA-Public Use
  Company Number: US-PFIZER INC-2008092523

PATIENT
  Age: 57 Year
  Sex: Male

DRUGS (3)
  1. PHENYTOIN [Suspect]
  2. GLYBURIDE [Concomitant]
  3. METFORMIN HCL [Concomitant]

REACTIONS (2)
  - LUPUS-LIKE SYNDROME [None]
  - MYOPERICARDITIS [None]
